FAERS Safety Report 17560718 (Version 1)
Quarter: 2020Q1

REPORT INFORMATION
  Report Type: Spontaneous
  Country: DE (occurrence: DE)
  Receive Date: 20200319
  Receipt Date: 20200319
  Transmission Date: 20200409
  Serious: Yes (Disabling, Other)
  Sender: FDA-Public Use
  Company Number: DE-PFIZER INC-2020114367

PATIENT
  Sex: Female

DRUGS (1)
  1. CYTOTEC [Suspect]
     Active Substance: MISOPROSTOL
     Indication: LABOUR INDUCTION
     Dosage: UNK
     Route: 064
     Dates: start: 20160609

REACTIONS (11)
  - Developmental delay [Unknown]
  - Neonatal disorder [Unknown]
  - Foetal exposure during delivery [Unknown]
  - Quadriparesis [Unknown]
  - Neonatal seizure [Unknown]
  - Cerebrovascular accident [Unknown]
  - Neonatal hypoxia [Unknown]
  - Amniocentesis abnormal [Unknown]
  - Arrhythmia neonatal [Unknown]
  - Speech disorder developmental [Unknown]
  - Congenital brain damage [Unknown]

NARRATIVE: CASE EVENT DATE: 20160609
